FAERS Safety Report 6922705-0 (Version None)
Quarter: 2010Q3

REPORT INFORMATION
  Report Type: 
  Country: None (occurrence: None)
  Receive Date: 20100813
  Receipt Date: 20100806
  Transmission Date: 20110219
  Serious: Yes (Hospitalization)
  Sender: FDA-Public Use
  Company Number: IT-BAYER-201035305GPV

PATIENT
  Age: 70 Year
  Sex: Male

DRUGS (5)
  1. SORAFENIB [Suspect]
     Indication: PRODUCT USED FOR UNKNOWN INDICATION
     Route: 048
     Dates: start: 20091104, end: 20091215
  2. APROVEL [Concomitant]
  3. DEDRALEN [Concomitant]
  4. DIUREMID [Concomitant]
  5. INDERAL [Concomitant]

REACTIONS (1)
  - ELECTROLYTE IMBALANCE [None]
